FAERS Safety Report 23368630 (Version 2)
Quarter: 2024Q1

REPORT INFORMATION
  Report Type: Spontaneous
  Country: LV (occurrence: None)
  Receive Date: 20240105
  Receipt Date: 20240222
  Transmission Date: 20240410
  Serious: No
  Sender: FDA-Public Use
  Company Number: LV-ROCHE-3466735

PATIENT
  Age: 71 Year
  Sex: Male

DRUGS (1)
  1. VABYSMO [Suspect]
     Active Substance: FARICIMAB\FARICIMAB-SVOA
     Indication: Age-related macular degeneration
     Route: 050
     Dates: start: 20230717

REACTIONS (2)
  - Visual impairment [Recovering/Resolving]
  - Retinal oedema [Recovered/Resolved]
